FAERS Safety Report 4579788-5 (Version None)
Quarter: 2005Q1

REPORT INFORMATION
  Report Type: 
  Country: None (occurrence: None)
  Receive Date: 20050210
  Receipt Date: 20050201
  Transmission Date: 20050727
  Serious: Yes (Other)
  Sender: FDA-Public Use
  Company Number: 2005-02-0064

PATIENT
  Age: 31 Year
  Sex: Female

DRUGS (2)
  1. CELESTONE [Suspect]
     Indication: ARTHRALGIA
     Dosage: 4 MD QD ORAL
     Route: 048
     Dates: start: 20041216, end: 20041217
  2. CELEBREX (CELCOXIB) CAPSULES [Concomitant]

REACTIONS (4)
  - DYSPNOEA [None]
  - FEELING HOT [None]
  - PRURITUS GENERALISED [None]
  - SWELLING FACE [None]
